FAERS Safety Report 6783377-1 (Version None)
Quarter: 2010Q2

REPORT INFORMATION
  Report Type: 
  Country: None (occurrence: None)
  Receive Date: 20100617
  Receipt Date: 20100601
  Transmission Date: 20101027
  Serious: Yes (Hospitalization, Other)
  Sender: FDA-Public Use
  Company Number: 2010SCPR001227

PATIENT
  Age: 56 Year
  Sex: Male

DRUGS (9)
  1. IBUPROFEN [Suspect]
     Indication: EAR PAIN
     Dosage: 400 MG, TID
     Dates: start: 20100429, end: 20100501
  2. ASPIRIN [Suspect]
     Indication: HEADACHE
     Dosage: 1 G, TID
     Dates: start: 20100502, end: 20100505
  3. MARAVIROC (MARAVIROC)  600MG [Suspect]
     Indication: HIV INFECTION
     Dosage: 600 MG, BID
     Dates: start: 20100219
  4. EPIVIR [Concomitant]
  5. TELZIR /01644801/ (FOSAMPRENAVIR) [Concomitant]
  6. NORVIR [Concomitant]
  7. BACTRIM [Concomitant]
  8. ZOVIRAX /00587301/ (ACICLOVIR) [Concomitant]
  9. VIREAD /01490001/ (TENOFOVIR) [Concomitant]

REACTIONS (4)
  - ANAEMIA [None]
  - EAR PAIN [None]
  - HEADACHE [None]
  - OESOPHAGEAL VARICES HAEMORRHAGE [None]
